FAERS Safety Report 21991501 (Version 1)
Quarter: 2023Q1

REPORT INFORMATION
  Report Type: Spontaneous
  Country: US (occurrence: None)
  Receive Date: 20230213
  Receipt Date: 20230213
  Transmission Date: 20230418
  Serious: No
  Sender: FDA-Public Use
  Company Number: None

PATIENT
  Sex: Female

DRUGS (1)
  1. KESIMPTA [Suspect]
     Active Substance: OFATUMUMAB
     Indication: Multiple sclerosis
     Dosage: OTHER QUANTITY : 20MG/0.4ML;?FREQUENCY : MONTHLY;?
     Route: 058
     Dates: start: 20221215

REACTIONS (7)
  - Blood pressure decreased [None]
  - Mineral deficiency [None]
  - Blood magnesium decreased [None]
  - Blood calcium decreased [None]
  - Blood potassium decreased [None]
  - Hypoaesthesia [None]
  - Product prescribing issue [None]
